FAERS Safety Report 4298048-3 (Version None)
Quarter: 2004Q1

REPORT INFORMATION
  Report Type: 
  Country: None (occurrence: None)
  Receive Date: 20040218
  Receipt Date: 20020102
  Transmission Date: 20041129
  Serious: Yes (Hospitalization, Other)
  Sender: FDA-Public Use
  Company Number: US-BRISTOL-MYERS SQUIBB COMPANY-11767837

PATIENT
  Age: 58 Year
  Sex: Female

DRUGS (8)
  1. STADOL [Suspect]
     Indication: MIGRAINE
     Route: 045
     Dates: start: 19950203
  2. WYGESIC [Concomitant]
  3. PHRENILIN [Concomitant]
  4. HYDROCODONE + ACETAMINOPHEN [Concomitant]
  5. EQUANIL [Concomitant]
  6. PHENERGAN [Concomitant]
  7. NORTRIPTYLINE HCL [Concomitant]
  8. TRANXENE [Concomitant]

REACTIONS (2)
  - DEPENDENCE [None]
  - DRUG ADDICT [None]
